FAERS Safety Report 10735435 (Version 2)
Quarter: 2015Q1

REPORT INFORMATION
  Report Type: Spontaneous
  Country: US (occurrence: US)
  Receive Date: 20150126
  Receipt Date: 20150127
  Transmission Date: 20150721
  Serious: No
  Sender: FDA-Public Use
  Company Number: US-ASTRAZENECA-2014SE85463

PATIENT
  Age: 12346 Day
  Sex: Female
  Weight: 68.9 kg

DRUGS (3)
  1. METOPROLOL SUCCINATE (NON AZ PRODUCT) [Suspect]
     Active Substance: METOPROLOL SUCCINATE
     Indication: HEART RATE INCREASED
     Route: 048
     Dates: start: 20141104
  2. FLUOCINONIDE. [Concomitant]
     Active Substance: FLUOCINONIDE
     Route: 061
     Dates: start: 20141024, end: 20141102
  3. CYCLOFEM ORTHONOVO [Concomitant]
     Indication: CONTRACEPTION
     Route: 048

REACTIONS (5)
  - Headache [Recovered/Resolved]
  - Chest discomfort [Recovering/Resolving]
  - Nausea [Recovered/Resolved]
  - Intentional product misuse [Unknown]
  - Paranasal sinus discomfort [Recovered/Resolved]

NARRATIVE: CASE EVENT DATE: 20141104
